FAERS Safety Report 4639972-9 (Version None)
Quarter: 2005Q2

REPORT INFORMATION
  Report Type: 
  Country: None (occurrence: None)
  Receive Date: 20050415
  Receipt Date: 20050404
  Transmission Date: 20051028
  Serious: Yes (Life-Threatening, Hospitalization)
  Sender: FDA-Public Use
  Company Number: RS005097-CDN

PATIENT
  Age: 77 Year
  Sex: Female
  Weight: 62.6 kg

DRUGS (5)
  1. RABEPRAZOLE SODIUM [Suspect]
     Indication: GASTRIC DISORDER
     Dosage: 20 MG, 2 IN 1 D, ORAL
     Route: 048
     Dates: end: 20050321
  2. KYTRIL [Concomitant]
  3. LEVOTHYROXINE SODIUM [Concomitant]
  4. CARBOPLATIN [Concomitant]
  5. TAXOL [Concomitant]

REACTIONS (6)
  - ALANINE AMINOTRANSFERASE INCREASED [None]
  - ASPARTATE AMINOTRANSFERASE INCREASED [None]
  - BLOOD ALKALINE PHOSPHATASE INCREASED [None]
  - BLOOD LACTATE DEHYDROGENASE INCREASED [None]
  - HEPATIC FUNCTION ABNORMAL [None]
  - RENAL FUNCTION TEST ABNORMAL [None]
